FAERS Safety Report 20029256 (Version 1)
Quarter: 2021Q4

REPORT INFORMATION
  Report Type: Spontaneous
  Country: US (occurrence: US)
  Receive Date: 20211103
  Receipt Date: 20211103
  Transmission Date: 20220303
  Serious: Yes (Other)
  Sender: FDA-Public Use
  Company Number: US-GLAXOSMITHKLINE-US2021GSK225534

PATIENT
  Sex: Male

DRUGS (12)
  1. ZANTAC [Suspect]
     Active Substance: RANITIDINE HYDROCHLORIDE
     Indication: Dyspepsia
     Dosage: 75 MG,DAILY, AND THEN OCCASIONAL
     Route: 065
     Dates: start: 202001, end: 202002
  2. ZANTAC [Suspect]
     Active Substance: RANITIDINE HYDROCHLORIDE
     Indication: Dyspepsia
     Dosage: 150 MG,DAILY, AND THEN OCCASIONAL
     Route: 065
     Dates: start: 202001, end: 202002
  3. ZANTAC [Suspect]
     Active Substance: RANITIDINE HYDROCHLORIDE
     Indication: Dyspepsia
     Dosage: UNK MG,DAILY, AND THEN OCCASIONAL
     Route: 065
     Dates: start: 202001, end: 202002
  4. ZANTAC [Suspect]
     Active Substance: RANITIDINE HYDROCHLORIDE
     Indication: Dyspepsia
     Dosage: 75 MG,DAILY, AND THEN OCCASIONAL
     Route: 065
     Dates: start: 200001, end: 202002
  5. ZANTAC [Suspect]
     Active Substance: RANITIDINE HYDROCHLORIDE
     Indication: Dyspepsia
     Dosage: 150 MG,DAILY, AND THEN OCCASIONAL
     Route: 065
     Dates: start: 200001, end: 202002
  6. ZANTAC [Suspect]
     Active Substance: RANITIDINE HYDROCHLORIDE
     Indication: Dyspepsia
     Dosage: UNK MG,DAILY, AND THEN OCCASIONAL
     Route: 065
     Dates: start: 200001, end: 202002
  7. RANITIDINE HYDROCHLORIDE [Suspect]
     Active Substance: RANITIDINE HYDROCHLORIDE
     Indication: Dyspepsia
     Dosage: 75 MG,PERIODS OF NON-USE AT LEAST 3 MONTHS WITHOUT USE,DAILY, AND THEN OCCASIONAL
     Route: 065
     Dates: start: 200001, end: 202002
  8. RANITIDINE HYDROCHLORIDE [Suspect]
     Active Substance: RANITIDINE HYDROCHLORIDE
     Indication: Dyspepsia
     Dosage: 150 MG,PERIODS OF NON-USE AT LEAST 3 MONTHS WITHOUT USE,DAILY, AND THEN OCCASIONAL
     Route: 065
     Dates: start: 200001, end: 202002
  9. RANITIDINE HYDROCHLORIDE [Suspect]
     Active Substance: RANITIDINE HYDROCHLORIDE
     Indication: Dyspepsia
     Dosage: UNK MG,PERIODS OF NON-USE AT LEAST 3 MONTHS WITHOUT USE,DAILY, AND THEN OCCASIONAL
     Route: 065
     Dates: start: 200001, end: 202002
  10. RANITIDINE HYDROCHLORIDE [Suspect]
     Active Substance: RANITIDINE HYDROCHLORIDE
     Indication: Dyspepsia
     Dosage: 75 MG,PERIODS OF NON-USE AT LEAST 3 MONTHS WITHOUT USE,DAILY, AND THEN OCCASIONAL
     Route: 065
     Dates: start: 200001, end: 202002
  11. RANITIDINE HYDROCHLORIDE [Suspect]
     Active Substance: RANITIDINE HYDROCHLORIDE
     Indication: Dyspepsia
     Dosage: 150 MG,PERIODS OF NON-USE AT LEAST 3 MONTHS WITHOUT USE,DAILY, AND THEN OCCASIONAL
     Route: 065
     Dates: start: 200001, end: 202002
  12. RANITIDINE HYDROCHLORIDE [Suspect]
     Active Substance: RANITIDINE HYDROCHLORIDE
     Indication: Dyspepsia
     Dosage: UNK MG,PERIODS OF NON-USE AT LEAST 3 MONTHS WITHOUT USE,DAILY, AND THEN OCCASIONAL
     Route: 065
     Dates: start: 200001, end: 202002

REACTIONS (1)
  - Prostate cancer [Unknown]
